FAERS Safety Report 24659716 (Version 1)
Quarter: 2024Q4

REPORT INFORMATION
  Report Type: Spontaneous
  Country: US (occurrence: US)
  Receive Date: 20241125
  Receipt Date: 20241125
  Transmission Date: 20250114
  Serious: No
  Sender: PFIZER
  Company Number: US-PFIZER INC-PV202400152352

PATIENT
  Age: 79 Year
  Sex: Female
  Weight: 84.8 kg

DRUGS (1)
  1. IBRANCE [Suspect]
     Active Substance: PALBOCICLIB
     Dosage: TAKE  DAILY WITH FOOD FOR 21 DAYS THEN OFF FOR 7. TAKE AT SAME TIME EACH DAY. SWALLOW WHOLE. DO NOT
     Route: 048

REACTIONS (1)
  - Fatigue [Unknown]
